FAERS Safety Report 9261995 (Version 1)
Quarter: 2013Q2

REPORT INFORMATION
  Report Type: Spontaneous
  Country: CA (occurrence: CA)
  Receive Date: 20130429
  Receipt Date: 20130429
  Transmission Date: 20140414
  Serious: Yes (Death)
  Sender: FDA-Public Use
  Company Number: CA-ALLERGAN-1305805US

PATIENT
  Age: 67 Year
  Sex: Male

DRUGS (4)
  1. GATIFLOXACIN SESQUIHYDRATE UNK [Suspect]
     Indication: STEVENS-JOHNSON SYNDROME
     Route: 047
  2. MOXIFLOXACIN [Suspect]
     Indication: PRODUCT USED FOR UNKNOWN INDICATION
     Dosage: UNK
  3. CORTICOSTEROIDS [Concomitant]
     Indication: STEVENS-JOHNSON SYNDROME
     Route: 042
  4. IMMUNOGLOBULIN [Concomitant]
     Indication: STEVENS-JOHNSON SYNDROME
     Route: 042

REACTIONS (5)
  - Death [Fatal]
  - Pyrexia [None]
  - Asthenia [None]
  - Influenza like illness [None]
  - Stevens-Johnson syndrome [None]
